FAERS Safety Report 10090579 (Version 1)
Quarter: 2014Q2

REPORT INFORMATION
  Report Type: Report from Study
  Country: ES (occurrence: ES)
  Receive Date: 20140421
  Receipt Date: 20140421
  Transmission Date: 20141212
  Serious: Yes (Other)
  Sender: FDA-Public Use
  Company Number: ES-FRI-1000066592

PATIENT
  Age: 79 Year
  Sex: Male

DRUGS (7)
  1. ACLIDINIUM [Suspect]
     Indication: CHRONIC OBSTRUCTIVE PULMONARY DISEASE
     Route: 055
     Dates: start: 201401, end: 20140202
  2. NEXIUM MUPS 20 MG COMPRIMIDOS GASTRORRESISTENTES , 28 COMPRIMIDOS [Concomitant]
     Dosage: 20 MG
     Route: 048
  3. SERETIDE ACCUHALER 50 MICROGRAMOS/500 MICROGRAMOS/INHALACION, POLVO PA [Concomitant]
     Indication: CHRONIC OBSTRUCTIVE PULMONARY DISEASE
     Dosage: 2 DOSAGE FORMS
     Route: 055
     Dates: end: 201401
  4. DACORTIN 30 MG COMPRIMIDOS, 30 COMPRIMIDOS [Concomitant]
     Dosage: 30 MG
     Route: 048
  5. PARACETAMOL [Concomitant]
     Dosage: 1950 MG
     Route: 048
  6. TERBASMIN TURBUHALER 500 MICROGRAMOS/INHALACION POLVO PARA INHALACION [Concomitant]
     Indication: CHRONIC OBSTRUCTIVE PULMONARY DISEASE
     Dosage: 500 MCG/6H
     Route: 055
  7. CEFDITOREN  PIVOXILO [Concomitant]
     Dosage: 400 MG
     Route: 048

REACTIONS (1)
  - Dyspepsia [Recovered/Resolved]
